FAERS Safety Report 20041239 (Version 1)
Quarter: 2021Q4

REPORT INFORMATION
  Report Type: Spontaneous
  Country: CN (occurrence: CN)
  Receive Date: 20211107
  Receipt Date: 20211107
  Transmission Date: 20220303
  Serious: Yes (Other)
  Sender: FDA-Public Use
  Company Number: CN-BAXTER-2021BAX034581

PATIENT
  Age: 66 Year
  Sex: Female
  Weight: 60 kg

DRUGS (2)
  1. MANNITOL [Suspect]
     Active Substance: MANNITOL
     Indication: Oedema
     Route: 041
     Dates: start: 20210923, end: 20210923
  2. MANNITOL [Suspect]
     Active Substance: MANNITOL
     Route: 041
     Dates: start: 20210924, end: 20210924

REACTIONS (2)
  - Vitreous floaters [Recovering/Resolving]
  - Pruritus [Recovering/Resolving]

NARRATIVE: CASE EVENT DATE: 20210924
